FAERS Safety Report 4741579-X (Version None)
Quarter: 2005Q3

REPORT INFORMATION
  Report Type: 
  Country: None (occurrence: None)
  Receive Date: 20050808
  Receipt Date: 20050721
  Transmission Date: 20060218
  Serious: Yes (Life-Threatening, Hospitalization, Other)
  Sender: FDA-Public Use
  Company Number: DE_050716503

PATIENT
  Age: 64 Year
  Sex: Female

DRUGS (3)
  1. ZYPREXA [Suspect]
     Indication: PSYCHOTIC DISORDER
     Dosage: 2.5 MG IN THE EVENING
     Dates: start: 20040101
  2. LORAZEPAM [Concomitant]
  3. NEUROPLANT (HYPERICUM PERFORATUM EXTRACT) [Concomitant]

REACTIONS (13)
  - CARDIAC FAILURE [None]
  - CONGESTIVE CARDIOMYOPATHY [None]
  - DYSPNOEA [None]
  - ELECTROCARDIOGRAM T WAVE INVERSION [None]
  - HEART RATE INCREASED [None]
  - METABOLIC ACIDOSIS [None]
  - MITRAL VALVE INCOMPETENCE [None]
  - PULMONARY CONGESTION [None]
  - PULMONARY OEDEMA [None]
  - RENAL FAILURE [None]
  - TACHYPNOEA [None]
  - TRICUSPID VALVE INCOMPETENCE [None]
  - VENTRICULAR DYSFUNCTION [None]
